FAERS Safety Report 5379718-2 (Version None)
Quarter: 2007Q3

REPORT INFORMATION
  Report Type: 
  Country: None (occurrence: None)
  Receive Date: 20070706
  Receipt Date: 20070703
  Transmission Date: 20080115
  Serious: Yes (Life-Threatening, Hospitalization, Other)
  Sender: FDA-Public Use
  Company Number: PHMT2007CA01066

PATIENT
  Age: 23 Year
  Sex: Male

DRUGS (7)
  1. CLOZARIL [Suspect]
     Indication: SCHIZOPHRENIA
     Dosage: 100 MGM, BID
     Route: 048
     Dates: start: 20070328, end: 20070414
  2. LIPITOR [Concomitant]
     Dosage: 20 MG AT SUPPER
     Route: 048
  3. CLONAZEPAM [Concomitant]
     Dosage: 1 MG, BID
     Route: 048
  4. PREDNISONE TAB [Concomitant]
  5. SERTRALINE HYDROCHLORIDE [Concomitant]
  6. DEMEROL [Concomitant]
  7. MARIJUANA [Concomitant]
     Dosage: SMOKED WHILE ON PASS FROM HOSPIATL
     Dates: start: 20070414

REACTIONS (17)
  - BACK PAIN [None]
  - BODY TEMPERATURE INCREASED [None]
  - CHEST PAIN [None]
  - DEPRESSED LEVEL OF CONSCIOUSNESS [None]
  - DYSPNOEA [None]
  - HEADACHE [None]
  - HYPERHIDROSIS [None]
  - HYPOTENSION [None]
  - LETHARGY [None]
  - MYOCARDITIS [None]
  - MYOSITIS [None]
  - PAIN IN EXTREMITY [None]
  - PHARYNGEAL ERYTHEMA [None]
  - RASH [None]
  - RED BLOOD CELL SEDIMENTATION RATE INCREASED [None]
  - TROPONIN INCREASED [None]
  - WHITE BLOOD CELL COUNT INCREASED [None]
